FAERS Safety Report 5943780-6 (Version None)
Quarter: 2008Q4

REPORT INFORMATION
  Report Type: 
  Country: None (occurrence: None)
  Receive Date: 20081106
  Receipt Date: 20081104
  Transmission Date: 20090506
  Serious: Yes (Hospitalization)
  Sender: FDA-Public Use
  Company Number: JP-ASTRAZENECA-2008AP08573

PATIENT
  Age: 62 Year
  Sex: Female

DRUGS (6)
  1. NOLVADEX [Suspect]
     Indication: MALIGNANT MELANOMA STAGE IV
     Route: 048
     Dates: start: 20080922, end: 20081020
  2. RANDA [Suspect]
     Indication: MALIGNANT MELANOMA STAGE IV
     Route: 041
     Dates: start: 20080922, end: 20080924
  3. DACARBAZINE [Suspect]
     Indication: MALIGNANT MELANOMA STAGE IV
     Route: 041
     Dates: start: 20080922, end: 20080924
  4. NIDRAN [Suspect]
     Indication: MALIGNANT MELANOMA STAGE IV
     Route: 041
     Dates: start: 20080922, end: 20080922
  5. FERON [Suspect]
     Indication: MALIGNANT MELANOMA STAGE IV
     Route: 061
     Dates: start: 20080925, end: 20080929
  6. FERON [Suspect]
     Route: 061
     Dates: start: 20081007, end: 20081011

REACTIONS (1)
  - WHITE BLOOD CELL COUNT DECREASED [None]
